FAERS Safety Report 7688563-4 (Version None)
Quarter: 2011Q3

REPORT INFORMATION
  Report Type: 
  Country: None (occurrence: None)
  Receive Date: 20110817
  Receipt Date: 20110817
  Transmission Date: 20111222
  Serious: Yes (Other)
  Sender: FDA-Public Use
  Company Number: None

PATIENT
  Age: 28 Year
  Sex: Male
  Weight: 80.285 kg

DRUGS (1)
  1. STRATTERA [Suspect]
     Indication: ATTENTION DEFICIT/HYPERACTIVITY DISORDER
     Dosage: 60MG
     Dates: start: 20110612, end: 20110816

REACTIONS (3)
  - SUICIDAL IDEATION [None]
  - MAJOR DEPRESSION [None]
  - HOMICIDAL IDEATION [None]
